FAERS Safety Report 6088789-X (Version None)
Quarter: 2009Q1

REPORT INFORMATION
  Report Type: 
  Country: None (occurrence: None)
  Receive Date: 20090219
  Receipt Date: 20090206
  Transmission Date: 20090719
  Serious: Yes (Life-Threatening, Hospitalization)
  Sender: FDA-Public Use
  Company Number: 2008S1000337

PATIENT
  Age: 43 Year
  Sex: Male
  Weight: 75 kg

DRUGS (10)
  1. CUBICIN [Suspect]
     Indication: BACTERAEMIA
     Dosage: 6.7 MG/KG; IV
     Route: 042
     Dates: start: 20080120, end: 20080127
  2. MEROPENEM [Concomitant]
  3. TIGECYCLINE [Concomitant]
  4. ZOSYN [Concomitant]
  5. TEICOPLANIN [Concomitant]
  6. MOXIFLOXACIN HCL [Concomitant]
  7. RIFAMPIN [Concomitant]
  8. STOCRIN [Concomitant]
  9. EMTRICITABINE [Concomitant]
  10. TENOFOVIR [Concomitant]

REACTIONS (6)
  - CARDIAC FAILURE ACUTE [None]
  - CARDIOGENIC SHOCK [None]
  - DILATATION VENTRICULAR [None]
  - LACTIC ACIDOSIS [None]
  - MYOCARDITIS [None]
  - VENTRICULAR DYSFUNCTION [None]
